FAERS Safety Report 12081022 (Version 1)
Quarter: 2016Q1

REPORT INFORMATION
  Report Type: Spontaneous
  Country: US (occurrence: US)
  Receive Date: 20160216
  Receipt Date: 20160216
  Transmission Date: 20160526
  Serious: No
  Sender: FDA-Public Use
  Company Number: US-PFIZER INC-2016030555

PATIENT
  Sex: Female

DRUGS (3)
  1. DICLOFENAC SODIUM/MISOPROSTOL [Suspect]
     Active Substance: DICLOFENAC SODIUM\MISOPROSTOL
  2. MELOXICAM. [Suspect]
     Active Substance: MELOXICAM
  3. PIROXICAM. [Suspect]
     Active Substance: PIROXICAM

REACTIONS (1)
  - Drug ineffective [Unknown]
